FAERS Safety Report 5653012-4 (Version None)
Quarter: 2008Q1

REPORT INFORMATION
  Report Type: 
  Country: None (occurrence: None)
  Receive Date: 20080306
  Receipt Date: 20080225
  Transmission Date: 20080703
  Serious: Yes (Other)
  Sender: FDA-Public Use
  Company Number: PHHY2008JP02417

PATIENT

DRUGS (1)
  1. PABRON NASAL INFECTION CAPSULE [Suspect]
     Indication: HOUSE DUST ALLERGY
     Route: 048
     Dates: start: 20070408

REACTIONS (4)
  - ACCIDENTAL OVERDOSE [None]
  - DIZZINESS [None]
  - MALAISE [None]
  - SOMNOLENCE [None]
